FAERS Safety Report 13185217 (Version 1)
Quarter: 2017Q1

REPORT INFORMATION
  Report Type: Spontaneous
  Country: None (occurrence: NL)
  Receive Date: 20170203
  Receipt Date: 20170203
  Transmission Date: 20170428
  Serious: Yes (Hospitalization, Other)
  Sender: FDA-Public Use
  Company Number: NL-TELIGENT, INC-IGIL20170032

PATIENT

DRUGS (3)
  1. METRONIDAZOLE. [Suspect]
     Active Substance: METRONIDAZOLE
     Indication: ANTIBIOTIC PROPHYLAXIS
     Route: 042
  2. CEFAZOLIN [Suspect]
     Active Substance: CEFAZOLIN
     Indication: ANTIBIOTIC PROPHYLAXIS
     Route: 042
  3. CEFUROXIME SODIUM. [Suspect]
     Active Substance: CEFUROXIME SODIUM
     Indication: ANTIBIOTIC PROPHYLAXIS
     Route: 042

REACTIONS (11)
  - Bile duct stone [Unknown]
  - Post procedural bile leak [Unknown]
  - Chest pain [Unknown]
  - Pain [Unknown]
  - Cardiac failure [Unknown]
  - Diarrhoea [Unknown]
  - Nausea [Unknown]
  - Empyema [Unknown]
  - Postoperative wound infection [Unknown]
  - Urinary tract infection [Unknown]
  - Post procedural infection [Unknown]
